FAERS Safety Report 5168495-6 (Version None)
Quarter: 2006Q4

REPORT INFORMATION
  Report Type: 
  Country: None (occurrence: None)
  Receive Date: 20061201
  Receipt Date: 20061123
  Transmission Date: 20070319
  Serious: No
  Sender: FDA-Public Use
  Company Number: 2006-150912-NL

PATIENT
  Age: 86 Year
  Sex: Female

DRUGS (6)
  1. MIRTAZAPINE [Suspect]
     Dosage: ORAL
     Route: 048
     Dates: start: 20060717, end: 20060801
  2. MIRTAZAPINE [Suspect]
     Dosage: ORAL
     Route: 048
     Dates: start: 20060801, end: 20060807
  3. RISEDRONATE SODIUM [Concomitant]
  4. ASPIRIN [Concomitant]
  5. LORMETAZEPAM [Concomitant]
  6. SIMVASTATIN [Concomitant]

REACTIONS (2)
  - NIGHTMARE [None]
  - SLEEP DISORDER [None]
